FAERS Safety Report 10066814 (Version 1)
Quarter: 2014Q2

REPORT INFORMATION
  Report Type: Spontaneous
  Country: US (occurrence: US)
  Receive Date: 20140408
  Receipt Date: 20140408
  Transmission Date: 20141212
  Serious: No
  Sender: FDA-Public Use
  Company Number: US-009507513-1404USA001697

PATIENT
  Age: 19 Year
  Sex: Female
  Weight: 46.71 kg

DRUGS (1)
  1. NUVARING [Suspect]
     Indication: CONTRACEPTION
     Dosage: THREE WEEKS IN/ONE WEEK RING FREE
     Route: 067
     Dates: end: 20140325

REACTIONS (2)
  - Unintended pregnancy [Not Recovered/Not Resolved]
  - Exposure during pregnancy [Unknown]
